FAERS Safety Report 5867623-4 (Version None)
Quarter: 2008Q3

REPORT INFORMATION
  Report Type: 
  Country: None (occurrence: None)
  Receive Date: 20080902
  Receipt Date: 20080822
  Transmission Date: 20090109
  Serious: Yes (Other)
  Sender: FDA-Public Use
  Company Number: BR-ROCHE-582885

PATIENT
  Age: 25 Year
  Sex: Female
  Weight: 57 kg

DRUGS (2)
  1. ROACUTAN [Suspect]
     Indication: ACNE
     Dosage: DOSAGE REGIMEN REPORTED AS 2 CAPS PER DAY.
     Route: 048
     Dates: start: 20080408, end: 20080820
  2. CARBOLITIUM [Concomitant]
     Indication: BIPOLAR DISORDER
     Route: 048

REACTIONS (3)
  - BIPOLAR DISORDER [None]
  - TONSILLECTOMY [None]
  - URTICARIA [None]
